FAERS Safety Report 6904195-7 (Version None)
Quarter: 2010Q3

REPORT INFORMATION
  Report Type: 
  Country: None (occurrence: None)
  Receive Date: 20100804
  Receipt Date: 20090325
  Transmission Date: 20110219
  Serious: No
  Sender: FDA-Public Use
  Company Number: US-PFIZER INC-2009165806

PATIENT
  Sex: Male

DRUGS (2)
  1. LYRICA [Suspect]
     Dosage: UNK
  2. PLAVIX [Suspect]
     Dosage: 75 MG, UNK
     Route: 048

REACTIONS (4)
  - CONTUSION [None]
  - EPISTAXIS [None]
  - FATIGUE [None]
  - TREMOR [None]
